FAERS Safety Report 21185403 (Version 4)
Quarter: 2023Q1

REPORT INFORMATION
  Report Type: Spontaneous
  Country: JP (occurrence: JP)
  Receive Date: 20220808
  Receipt Date: 20230301
  Transmission Date: 20230418
  Serious: Yes (Hospitalization, Other)
  Sender: FDA-Public Use
  Company Number: JP-GLAXOSMITHKLINE-JP2022JPN114482

PATIENT

DRUGS (13)
  1. NUCALA [Suspect]
     Active Substance: MEPOLIZUMAB
     Indication: Asthma
     Dosage: 100 MG, ONCE IN 4WEEKS
     Route: 058
     Dates: start: 20171129, end: 20210721
  2. NUCALA [Suspect]
     Active Substance: MEPOLIZUMAB
     Dosage: 100 MG, ONCE IN 4WEEKS
     Route: 058
     Dates: start: 20220629, end: 20220629
  3. TRELEGY ELLIPTA [Suspect]
     Active Substance: FLUTICASONE FUROATE\UMECLIDINIUM BROMIDE\VILANTEROL TRIFENATATE
     Indication: Asthma
     Dosage: 200 UG, QD
     Route: 055
     Dates: start: 20220406, end: 20220720
  4. THEOPHYLLINE SUSTAINED-RELEASE TABLETS [Concomitant]
     Dosage: 200 MG, QD
     Route: 048
     Dates: start: 2016
  5. LANSOPRAZOLE [Concomitant]
     Active Substance: LANSOPRAZOLE
     Dosage: 15 MG, QD
     Route: 048
     Dates: start: 201612
  6. PRANLUKAST CAPSULE [Concomitant]
     Dosage: 225 MG, BID
     Route: 048
     Dates: start: 2016
  7. ERYTHROCIN [Concomitant]
     Active Substance: ERYTHROMYCIN LACTOBIONATE
     Dosage: 200 MG, BID
     Route: 048
     Dates: start: 20171005
  8. MOSAPRIDE CITRATE [Concomitant]
     Active Substance: MOSAPRIDE CITRATE
     Dosage: 5 MG, TID
     Route: 048
     Dates: start: 20220512
  9. PREDONINE TABLET (PREDNISOLONE) [Concomitant]
     Dosage: 10 MG, BID
     Route: 048
     Dates: start: 20220323
  10. SPIRIVA [Concomitant]
     Active Substance: TIOTROPIUM BROMIDE MONOHYDRATE
     Indication: Asthma
     Dosage: UNK
     Dates: end: 20220405
  11. SYMBICORT [Concomitant]
     Active Substance: BUDESONIDE\FORMOTEROL FUMARATE DIHYDRATE
     Indication: Asthma
     Dosage: 2022 UNK
     Dates: end: 20220405
  12. KETOPROFEN [Concomitant]
     Active Substance: KETOPROFEN
     Dosage: UNK UNK, QD
     Route: 061
     Dates: end: 2022
  13. DAIPHEN COMBINATION TABLETS [Concomitant]
     Indication: Prophylaxis
     Dosage: 0.5 DF, MONDAY, WEDNESDAY, FRIDAY
     Route: 048
     Dates: start: 20220613

REACTIONS (3)
  - Pancreatitis acute [Recovered/Resolved]
  - Pancreatic cystadenoma [Not Recovered/Not Resolved]
  - Asthma [Recovering/Resolving]

NARRATIVE: CASE EVENT DATE: 20220704
